FAERS Safety Report 6515839-6 (Version None)
Quarter: 2009Q4

REPORT INFORMATION
  Report Type: 
  Country: None (occurrence: None)
  Receive Date: 20091223
  Receipt Date: 20091211
  Transmission Date: 20100525
  Serious: Yes (Hospitalization, Other)
  Sender: FDA-Public Use
  Company Number: DE-CELGENEUS-062-20785-09111726

PATIENT
  Sex: Male
  Weight: 86.3 kg

DRUGS (3)
  1. THALIDOMIDE PHARMION [Suspect]
     Indication: MULTIPLE MYELOMA
     Route: 048
     Dates: start: 20090709, end: 20091117
  2. THALIDOMIDE PHARMION [Suspect]
     Route: 048
     Dates: start: 20091203
  3. DEXAMETHASONE TAB [Suspect]
     Indication: MULTIPLE MYELOMA
     Route: 048
     Dates: start: 20090709, end: 20091115

REACTIONS (1)
  - TACHYARRHYTHMIA [None]
